FAERS Safety Report 4809124-8 (Version None)
Quarter: 2005Q4

REPORT INFORMATION
  Report Type: 
  Country: None (occurrence: None)
  Receive Date: 20051024
  Receipt Date: 20051024
  Transmission Date: 20060501
  Serious: No
  Sender: FDA-Public Use
  Company Number: None

PATIENT
  Age: 51 Year
  Sex: Female
  Weight: 94.8018 kg

DRUGS (1)
  1. ABILIFY [Suspect]
     Indication: BIPOLAR DISORDER
     Dosage: 15 MG Q DAY
     Dates: start: 20050914, end: 20051001

REACTIONS (5)
  - ABNORMAL BEHAVIOUR [None]
  - ECONOMIC PROBLEM [None]
  - INSOMNIA [None]
  - MANIA [None]
  - RESTLESSNESS [None]
